FAERS Safety Report 20380269 (Version 3)
Quarter: 2023Q2

REPORT INFORMATION
  Report Type: Spontaneous
  Country: US (occurrence: US)
  Receive Date: 20220126
  Receipt Date: 20230526
  Transmission Date: 20230721
  Serious: Yes (Other)
  Sender: FDA-Public Use
  Company Number: US-JNJFOC-20220128330

PATIENT
  Age: 76 Year
  Sex: Female

DRUGS (1)
  1. AVEENO HYDROCORTISONE ANTI-ITCH [Suspect]
     Active Substance: HYDROCORTISONE
     Indication: Product used for unknown indication
     Dosage: SMALLER THAN A PEA SIZE JUST ONCE
     Route: 061
     Dates: start: 20200417

REACTIONS (2)
  - Blindness unilateral [Not Recovered/Not Resolved]
  - Injury corneal [Not Recovered/Not Resolved]

NARRATIVE: CASE EVENT DATE: 20200418
